FAERS Safety Report 12132562 (Version 1)
Quarter: 2016Q1

REPORT INFORMATION
  Report Type: Spontaneous
  Country: PT (occurrence: PT)
  Receive Date: 20160301
  Receipt Date: 20160301
  Transmission Date: 20160526
  Serious: Yes (Disabling)
  Sender: FDA-Public Use
  Company Number: PT-009507513-1602PRT012377

PATIENT
  Sex: Female
  Weight: 82 kg

DRUGS (1)
  1. CIRCLET [Suspect]
     Active Substance: ETHINYL ESTRADIOL\ETONOGESTREL
     Indication: ACNE
     Dosage: POSOLOGY: 1 RING EVERY 3 WEEKS WITH 7 DAYS OF INTERVAL IN BETWEEN.1 DF, CYCLICAL
     Route: 067
     Dates: start: 20151205, end: 20151226

REACTIONS (5)
  - Off label use [Recovered/Resolved]
  - Pain [Recovering/Resolving]
  - Pain [Recovered/Resolved]
  - Pain in extremity [Recovering/Resolving]
  - Deep vein thrombosis [Recovering/Resolving]

NARRATIVE: CASE EVENT DATE: 20151205
